FAERS Safety Report 24539199 (Version 1)
Quarter: 2024Q4

REPORT INFORMATION
  Report Type: Spontaneous
  Country: CA (occurrence: CA)
  Receive Date: 20241023
  Receipt Date: 20241023
  Transmission Date: 20250115
  Serious: Yes (Other)
  Sender: ACCORD
  Company Number: None

PATIENT
  Age: 14 Year
  Sex: Female

DRUGS (6)
  1. CISPLATIN [Suspect]
     Active Substance: CISPLATIN
     Indication: Epithelioid mesothelioma
     Dosage: CYCLICAL
     Route: 042
  2. NAPROXEN [Suspect]
     Active Substance: NAPROXEN
     Indication: Arthritis
  3. NIVOLUMAB [Suspect]
     Active Substance: NIVOLUMAB
     Indication: Epithelioid mesothelioma
     Dosage: CYCLICAL
  4. YERVOY [Suspect]
     Active Substance: IPILIMUMAB
     Indication: Epithelioid mesothelioma
     Dosage: CYCLICAL
  5. PREDNISOLONE [Concomitant]
     Active Substance: PREDNISOLONE
  6. NAPROXEN [Suspect]
     Active Substance: NAPROXEN
     Indication: Arthritis

REACTIONS (8)
  - Anaphylactic reaction [Unknown]
  - Antinuclear antibody [Unknown]
  - Arthritis [Unknown]
  - Gastrointestinal disorder [Unknown]
  - Investigation [Unknown]
  - Physical examination [Unknown]
  - Rheumatoid factor [Unknown]
  - Serology test [Unknown]
